FAERS Safety Report 19820265 (Version 3)
Quarter: 2021Q4

REPORT INFORMATION
  Report Type: Report from Study
  Country: US (occurrence: US)
  Receive Date: 20210913
  Receipt Date: 20211113
  Transmission Date: 20220303
  Serious: Yes (Hospitalization)
  Sender: FDA-Public Use
  Company Number: NVSC2021US203901

PATIENT
  Age: 44 Year
  Sex: Female

DRUGS (1)
  1. KESIMPTA [Suspect]
     Active Substance: OFATUMUMAB
     Indication: Multiple sclerosis
     Dosage: UNK, (SUBCUTANEOUS- BENEATH THE SKIN USUALLY VIA INJECTION)
     Route: 058
     Dates: start: 20210720

REACTIONS (1)
  - Lower limb fracture [Unknown]

NARRATIVE: CASE EVENT DATE: 20210904
